FAERS Safety Report 5781554-X (Version None)
Quarter: 2008Q2

REPORT INFORMATION
  Report Type: 
  Country: None (occurrence: None)
  Receive Date: 20080623
  Receipt Date: 20070723
  Transmission Date: 20081010
  Serious: No
  Sender: FDA-Public Use
  Company Number: US-ASTRAZENECA-2007UW17799

PATIENT
  Age: 64 Year
  Sex: Female
  Weight: 93.4 kg

DRUGS (15)
  1. RHINOCORT [Suspect]
     Indication: SINUS CONGESTION
     Dosage: 1 SPRAY EACH NOSTRIL
     Route: 045
     Dates: start: 20070712
  2. RHINOCORT [Suspect]
     Indication: NASAL DISCOMFORT
     Dosage: 1 SPRAY EACH NOSTRIL
     Route: 045
     Dates: start: 20070712
  3. OXYGEN [Concomitant]
  4. DUONEB [Concomitant]
  5. MUCINEX [Concomitant]
  6. FOLIC ACID [Concomitant]
  7. ZYRTEC [Concomitant]
  8. FUROSEMIDE [Concomitant]
  9. PREDNISONE TAB [Concomitant]
  10. THEOPHYLLINE [Concomitant]
  11. ALPRAZOLAM [Concomitant]
  12. AMLODIPINE [Concomitant]
  13. LISINOPRIL [Concomitant]
  14. VITAMINS [Concomitant]
  15. ACETYLCYSTEINE [Concomitant]

REACTIONS (3)
  - BLISTER [None]
  - NASAL DISCOMFORT [None]
  - PHARYNGOLARYNGEAL PAIN [None]
